FAERS Safety Report 12165717 (Version 2)
Quarter: 2016Q1

REPORT INFORMATION
  Report Type: Spontaneous
  Country: US (occurrence: US)
  Receive Date: 20160309
  Receipt Date: 20160315
  Transmission Date: 20160526
  Serious: Yes (Other)
  Sender: FDA-Public Use
  Company Number: US-SA-2016SA045982

PATIENT
  Sex: Female

DRUGS (4)
  1. OXALIPLATIN. [Suspect]
     Active Substance: OXALIPLATIN
     Indication: MATERNAL EXPOSURE TIMING UNSPECIFIED
     Dosage: 2 AND 3 TRIMESTER
     Route: 064
  2. IRINOTECAN [Suspect]
     Active Substance: IRINOTECAN
     Indication: MATERNAL EXPOSURE TIMING UNSPECIFIED
     Dosage: 2 AND 3 TRIMESTER
     Route: 064
  3. FLUOROURACIL. [Suspect]
     Active Substance: FLUOROURACIL
     Indication: MATERNAL EXPOSURE TIMING UNSPECIFIED
     Dosage: 2 AND 3 TRIMESTER
     Route: 064
  4. FOLINIC ACID [Suspect]
     Active Substance: LEUCOVORIN
     Indication: MATERNAL EXPOSURE TIMING UNSPECIFIED
     Dosage: 2 AND 3 TRIMESTER
     Route: 064

REACTIONS (5)
  - Foetal exposure during pregnancy [Unknown]
  - Product use issue [Unknown]
  - Lymphopenia [Recovered/Resolved]
  - T-lymphocyte count decreased [Recovered/Resolved]
  - Cytology abnormal [Recovering/Resolving]
